FAERS Safety Report 26143157 (Version 1)
Quarter: 2025Q4

REPORT INFORMATION
  Report Type: Spontaneous
  Country: US (occurrence: US)
  Receive Date: 20251211
  Receipt Date: 20251211
  Transmission Date: 20260118
  Serious: Yes (Hospitalization)
  Sender: AUROBINDO
  Company Number: US-AUROBINDO-AUR-APL-2024-009999

PATIENT
  Sex: Female

DRUGS (1)
  1. CLORAZEPATE DIPOTASSIUM [Suspect]
     Active Substance: CLORAZEPATE DIPOTASSIUM
     Indication: Product used for unknown indication
     Dosage: UNK
     Route: 065

REACTIONS (8)
  - Illness [Unknown]
  - Diarrhoea [Unknown]
  - Pyrexia [Unknown]
  - Feeling abnormal [Unknown]
  - Fatigue [Unknown]
  - Withdrawal syndrome [Unknown]
  - Therapy cessation [Unknown]
  - Product availability issue [Unknown]
